FAERS Safety Report 17556578 (Version 2)
Quarter: 2020Q2

REPORT INFORMATION
  Report Type: Spontaneous
  Country: US (occurrence: US)
  Receive Date: 20200318
  Receipt Date: 20200401
  Transmission Date: 20200713
  Serious: Yes (Other)
  Sender: FDA-Public Use
  Company Number: US-PFIZER INC-2016566411

PATIENT
  Age: 81 Year
  Sex: Female
  Weight: 81.65 kg

DRUGS (4)
  1. REVATIO [Suspect]
     Active Substance: SILDENAFIL CITRATE
     Dosage: 60 MG, DAILY (THREE TABLETS DAILY)
     Route: 048
  2. LEVEMIR [Concomitant]
     Active Substance: INSULIN DETEMIR
     Indication: DIABETES MELLITUS
     Dosage: UNK, 36-38 UNITS BY INJECTION NIGHTLY
  3. REVATIO [Suspect]
     Active Substance: SILDENAFIL CITRATE
     Indication: PULMONARY HYPERTENSION
     Dosage: 20 MG, 1 TABLET THREE TIMES A DAY
     Route: 048
  4. JANUVIA [Concomitant]
     Active Substance: SITAGLIPTIN PHOSPHATE
     Indication: DIABETES MELLITUS
     Dosage: 50 MG, 1 TABLET DAILY WITH OR WITHOUT FOOD
     Route: 048
     Dates: start: 2020

REACTIONS (2)
  - Pneumonia [Unknown]
  - Blood glucose increased [Unknown]
